FAERS Safety Report 9686376 (Version 1)
Quarter: 2013Q4

REPORT INFORMATION
  Report Type: Spontaneous
  Country: GB (occurrence: GB)
  Receive Date: 20131113
  Receipt Date: 20131113
  Transmission Date: 20140711
  Serious: Yes (Hospitalization)
  Sender: FDA-Public Use
  Company Number: GB-BRISTOL-MYERS SQUIBB COMPANY-19803550

PATIENT
  Sex: 0

DRUGS (1)
  1. GLUCOPHAGE POWDER [Suspect]
     Dosage: 1 DF : 3 SACHET

REACTIONS (1)
  - Aspiration [Unknown]
